FAERS Safety Report 9813515 (Version 3)
Quarter: 2014Q2

REPORT INFORMATION
  Report Type: Spontaneous
  Country: FR (occurrence: FR)
  Receive Date: 20140113
  Receipt Date: 20140512
  Transmission Date: 20141212
  Serious: Yes (Death, Hospitalization)
  Sender: FDA-Public Use
  Company Number: FR-PFIZER INC-2014005870

PATIENT
  Age: 85 Year
  Sex: Male

DRUGS (11)
  1. XANAX [Suspect]
     Dosage: 0.25 MG IN THE MORNING, 0.25 MG AT NOON AND 0.50 MG IN THE EVENING
     Route: 048
     Dates: start: 20131023, end: 20131026
  2. INIPOMP [Suspect]
     Dosage: 20 MG, 1X/DAY
     Route: 048
     Dates: end: 20131026
  3. TAVANIC [Suspect]
     Indication: OSTEITIS
     Dosage: 250 MG, 1X/DAY
     Route: 048
     Dates: start: 20130910, end: 20131029
  4. TAVANIC [Suspect]
     Indication: OSTEOMYELITIS
  5. AUGMENTIN [Suspect]
     Indication: OSTEITIS
     Dosage: 1 G, 3X/DAY
     Route: 048
     Dates: start: 20130910, end: 20131029
  6. AUGMENTIN [Suspect]
     Indication: OSTEOMYELITIS
  7. NOVONORM [Suspect]
     Dosage: 1 MG, 3X/DAY
     Route: 048
     Dates: end: 20131031
  8. KARDEGIC [Suspect]
     Dosage: 160 MG, 1X/DAY
     Route: 048
  9. MECIR LP [Suspect]
     Dosage: 0.4 MG, 1X/DAY
     Route: 048
  10. INNOHEP [Suspect]
     Indication: ATRIAL FIBRILLATION
     Dosage: 0.7 ML, 14000 IU ANTI XA/0.7 ML, 1X/DAY
     Route: 058
  11. CERIS [Suspect]
     Dosage: 20 MG, 1X/DAY
     Route: 048
     Dates: end: 20131027

REACTIONS (2)
  - Hepatic encephalopathy [Fatal]
  - Hepatitis [Fatal]
